FAERS Safety Report 18795565 (Version 1)
Quarter: 2021Q1

REPORT INFORMATION
  Report Type: Spontaneous
  Country: JP (occurrence: JP)
  Receive Date: 20210127
  Receipt Date: 20210127
  Transmission Date: 20210419
  Serious: Yes (Other)
  Sender: FDA-Public Use
  Company Number: JP-GILEAD-2021-0514257

PATIENT
  Age: 8 Decade
  Sex: Male

DRUGS (5)
  1. SOVALDI [Suspect]
     Active Substance: SOFOSBUVIR
     Indication: PRODUCT USED FOR UNKNOWN INDICATION
     Dosage: UNK
     Route: 065
  2. COPEGUS [Concomitant]
     Active Substance: RIBAVIRIN
  3. ENTECAVIR. [Concomitant]
     Active Substance: ENTECAVIR
  4. CANDESARTAN [CANDESARTAN CILEXETIL] [Concomitant]
     Active Substance: CANDESARTAN CILEXETIL
  5. BARACLUDE [Concomitant]
     Active Substance: ENTECAVIR

REACTIONS (1)
  - Interstitial lung disease [Unknown]
